FAERS Safety Report 8490923-9 (Version None)
Quarter: 2012Q2

REPORT INFORMATION
  Report Type: 
  Country: None (occurrence: None)
  Receive Date: 20120629
  Receipt Date: 20120629
  Transmission Date: 20120825
  Serious: Yes (Life-Threatening, Hospitalization, Disabling)
  Sender: FDA-Public Use
  Company Number: None

PATIENT
  Age: 51 Year
  Sex: Female
  Weight: 68.0396 kg

DRUGS (4)
  1. ZITHROMAX [Suspect]
     Indication: PHARYNGITIS STREPTOCOCCAL
     Dosage: PO
     Route: 048
     Dates: start: 20090228, end: 20090304
  2. ZITHROMAX [Suspect]
     Indication: STREPTOCOCCAL INFECTION
     Dosage: PO
     Route: 048
     Dates: start: 20090228, end: 20090304
  3. ZITHROMAX [Suspect]
     Indication: PHARYNGITIS STREPTOCOCCAL
     Dosage: PO
     Route: 048
     Dates: start: 20090223, end: 20090224
  4. ZITHROMAX [Suspect]
     Indication: STREPTOCOCCAL INFECTION
     Dosage: PO
     Route: 048
     Dates: start: 20090223, end: 20090224

REACTIONS (1)
  - CARDIAC FAILURE [None]
